FAERS Safety Report 6827550-2 (Version None)
Quarter: 2010Q3

REPORT INFORMATION
  Report Type: 
  Country: None (occurrence: None)
  Receive Date: 20100709
  Receipt Date: 20100630
  Transmission Date: 20110219
  Serious: Yes (Congenital Anomaly, Other)
  Sender: FDA-Public Use
  Company Number: US-ABBOTT-10P-163-0654821-00

PATIENT
  Sex: Female
  Weight: 79.45 kg

DRUGS (17)
  1. TRILIPIX [Suspect]
     Indication: BLOOD TRIGLYCERIDES INCREASED
     Dates: start: 20080101
  2. AMBIEN CR [Concomitant]
     Indication: INSOMNIA
  3. LYRICA [Concomitant]
     Indication: FIBROMYALGIA
  4. CYMBALTA [Concomitant]
     Indication: PAIN
  5. SIMVASTATIN [Concomitant]
     Indication: BLOOD CHOLESTEROL
  6. ASPIRIN [Concomitant]
     Indication: PRODUCT USED FOR UNKNOWN INDICATION
  7. ESTRADIOL [Concomitant]
     Indication: HORMONE REPLACEMENT THERAPY
  8. NORVASC [Concomitant]
     Indication: HYPERTENSION
  9. VITAMIN D [Concomitant]
     Indication: VITAMIN SUPPLEMENTATION
  10. BENEFIBER [Concomitant]
     Indication: SUPPLEMENTATION THERAPY
  11. ZANTAC [Concomitant]
     Indication: GASTROOESOPHAGEAL REFLUX DISEASE
  12. DARVOCET-N 100 [Concomitant]
     Indication: PAIN
  13. LORAZEPAM [Concomitant]
     Indication: ANXIETY
  14. FLEXERIL [Concomitant]
     Indication: MYALGIA
  15. HYDROCODONE BITARTRATE [Concomitant]
     Indication: PAIN
  16. PHENERGAN [Concomitant]
     Indication: NAUSEA
     Dates: start: 20100301
  17. OXYCONTIN [Concomitant]
     Indication: PAIN

REACTIONS (22)
  - ALOPECIA [None]
  - APTYALISM [None]
  - ARTHRALGIA [None]
  - BALANCE DISORDER [None]
  - BLOOD GLUCOSE INCREASED [None]
  - CONSTIPATION [None]
  - DENTAL CARIES [None]
  - DRY MOUTH [None]
  - FALL [None]
  - FRACTURE [None]
  - GINGIVAL RECESSION [None]
  - GINGIVITIS [None]
  - GROIN PAIN [None]
  - MOBILITY DECREASED [None]
  - MUSCLE INJURY [None]
  - MUSCLE RUPTURE [None]
  - NAUSEA [None]
  - PAIN IN JAW [None]
  - PERIODONTAL INFECTION [None]
  - PERIODONTAL OPERATION [None]
  - TOOTH DISORDER [None]
  - TOOTHACHE [None]
